FAERS Safety Report 23489802 (Version 1)
Quarter: 2024Q1

REPORT INFORMATION
  Report Type: Spontaneous
  Country: US (occurrence: None)
  Receive Date: 20240206
  Receipt Date: 20240206
  Transmission Date: 20240409
  Serious: No
  Sender: FDA-Public Use
  Company Number: US-ROCHE-3272463

PATIENT
  Age: 59 Year
  Sex: Female

DRUGS (2)
  1. XOLAIR [Suspect]
     Active Substance: OMALIZUMAB
     Indication: Chronic spontaneous urticaria
     Dosage: FIRST SQ INJECTION
     Route: 058
     Dates: start: 20221228
  2. XOLAIR [Suspect]
     Active Substance: OMALIZUMAB
     Route: 058
     Dates: start: 20230125

REACTIONS (11)
  - Headache [Recovered/Resolved]
  - Malaise [Recovered/Resolved]
  - Nausea [Recovered/Resolved]
  - Nasal congestion [Recovered/Resolved]
  - Nasopharyngitis [Unknown]
  - Pharyngeal disorder [Unknown]
  - Oedema mucosal [Unknown]
  - Throat tightness [Unknown]
  - Headache [Unknown]
  - Malaise [Unknown]
  - Nausea [Unknown]

NARRATIVE: CASE EVENT DATE: 20221231
